FAERS Safety Report 16700263 (Version 1)
Quarter: 2019Q3

REPORT INFORMATION
  Report Type: Report from Study
  Country: AU (occurrence: AU)
  Receive Date: 20190814
  Receipt Date: 20190814
  Transmission Date: 20191004
  Serious: Yes (Hospitalization, Other)
  Sender: FDA-Public Use
  Company Number: AU-ROCHE-2344460

PATIENT
  Age: 59 Year
  Sex: Female
  Weight: 120 kg

DRUGS (2)
  1. TAPENTADOL [Concomitant]
     Active Substance: TAPENTADOL
     Route: 048
     Dates: start: 20190704, end: 20190711
  2. ACTEMRA [Suspect]
     Active Substance: TOCILIZUMAB
     Indication: RHEUMATOID ARTHRITIS
     Route: 042
     Dates: start: 20170102, end: 20190703

REACTIONS (7)
  - Cyst [Recovered/Resolved]
  - Vomiting [Unknown]
  - Hypokalaemia [Unknown]
  - Subarachnoid haemorrhage [Recovered/Resolved]
  - Photophobia [Unknown]
  - Rheumatoid arthritis [Recovering/Resolving]
  - Thunderclap headache [Unknown]

NARRATIVE: CASE EVENT DATE: 201906
